FAERS Safety Report 5808325-X (Version None)
Quarter: 2008Q3

REPORT INFORMATION
  Report Type: 
  Country: None (occurrence: None)
  Receive Date: 20080709
  Receipt Date: 20080702
  Transmission Date: 20090109
  Serious: Yes (Other)
  Sender: FDA-Public Use
  Company Number: CHNY2008AU02546

PATIENT
  Age: 18 Year
  Sex: Male

DRUGS (3)
  1. QUITX GUM (NCH) (NICOTINE) CHEWABLE GUM [Suspect]
     Indication: SMOKING CESSATION THERAPY
     Dosage: 2 MG, CHEWED
     Dates: start: 20080623, end: 20080623
  2. VENTOLIN [Concomitant]
  3. SERETIDE (FLUTICASONE PROPIONATE, SALMETEROL XINAFOATE) [Concomitant]

REACTIONS (5)
  - BURNING SENSATION [None]
  - LIP DISORDER [None]
  - PRURITUS [None]
  - THROAT IRRITATION [None]
  - THROAT TIGHTNESS [None]
